FAERS Safety Report 10927899 (Version 2)
Quarter: 2015Q1

REPORT INFORMATION
  Report Type: Spontaneous
  Country: FR (occurrence: FR)
  Receive Date: 20150319
  Receipt Date: 20150326
  Transmission Date: 20150721
  Serious: Yes (Hospitalization, Other)
  Sender: FDA-Public Use
  Company Number: FR-AMGEN-FRASP2015025876

PATIENT
  Age: 60 Year
  Sex: Male

DRUGS (8)
  1. SOLU-MEDROL [Suspect]
     Active Substance: METHYLPREDNISOLONE SODIUM SUCCINATE
     Indication: RHEUMATOID ARTHRITIS
     Dosage: 120 MG, 1X/DAY
     Route: 040
     Dates: start: 20150206, end: 20150207
  2. ENBREL [Suspect]
     Active Substance: ETANERCEPT
     Indication: RHEUMATOID ARTHRITIS
     Dosage: UNK
     Route: 058
     Dates: start: 2012, end: 201410
  3. IXPRIM [Concomitant]
     Active Substance: ACETAMINOPHEN\TRAMADOL HYDROCHLORIDE
     Indication: PAIN
     Dosage: UNK
     Route: 048
  4. SOLU-MEDROL [Suspect]
     Active Substance: METHYLPREDNISOLONE SODIUM SUCCINATE
     Dosage: 250 MG, 1X/DAY
     Route: 040
     Dates: start: 20150208, end: 20150208
  5. CORTANCYL [Suspect]
     Active Substance: PREDNISONE
     Indication: RHEUMATOID ARTHRITIS
     Dosage: 20 MG, 3X/DAY
     Route: 048
     Dates: end: 20150206
  6. CORTANCYL [Suspect]
     Active Substance: PREDNISONE
     Dosage: UNK UNK, SINGLE
     Route: 048
     Dates: start: 20150209, end: 20150209
  7. MICARDIS [Concomitant]
     Active Substance: TELMISARTAN
     Indication: HYPERTENSION
     Dosage: UNK
     Route: 048
  8. ENBREL [Suspect]
     Active Substance: ETANERCEPT
     Dosage: 1 INJECTION, EVERY 10 DAYS
     Route: 058
     Dates: start: 201410, end: 201502

REACTIONS (4)
  - Stomatitis [Unknown]
  - Mediastinitis [Unknown]
  - Rheumatoid arthritis [Unknown]
  - Lung abscess [Unknown]

NARRATIVE: CASE EVENT DATE: 20150203
